FAERS Safety Report 25979054 (Version 1)
Quarter: 2025Q4

REPORT INFORMATION
  Report Type: Spontaneous
  Country: JP (occurrence: JP)
  Receive Date: 20251030
  Receipt Date: 20251030
  Transmission Date: 20260119
  Serious: Yes (Other)
  Sender: ROCHE
  Company Number: JP-CHUGAI-2025033950

PATIENT
  Age: 54 Year

DRUGS (4)
  1. ACTEMRA [Suspect]
     Active Substance: TOCILIZUMAB
     Indication: Differentiation syndrome
     Dosage: UNK
     Route: 065
  2. IDARUBICIN HYDROCHLORIDE [Concomitant]
     Active Substance: IDARUBICIN HYDROCHLORIDE
     Indication: Acute promyelocytic leukaemia
     Dosage: UNK
     Route: 065
  3. CYTARABINE [Concomitant]
     Active Substance: CYTARABINE
     Indication: Acute promyelocytic leukaemia
     Dosage: UNK
     Route: 065
  4. DEXAMETHASONE [Concomitant]
     Active Substance: DEXAMETHASONE
     Indication: Differentiation syndrome
     Dosage: UNK
     Route: 065

REACTIONS (4)
  - Troponin increased [Unknown]
  - Ejection fraction decreased [Recovering/Resolving]
  - Brain natriuretic peptide increased [Unknown]
  - Off label use [Unknown]
